FAERS Safety Report 8128915-1 (Version None)
Quarter: 2012Q1

REPORT INFORMATION
  Report Type: 
  Country: None (occurrence: None)
  Receive Date: 20120210
  Receipt Date: 20110516
  Transmission Date: 20120608
  Serious: No
  Sender: FDA-Public Use
  Company Number: US-BRISTOL-MYERS SQUIBB COMPANY-15746944

PATIENT
  Age: 34 Year
  Sex: Female

DRUGS (8)
  1. WATER [Concomitant]
     Dosage: WATER PILLS.
  2. ORENCIA [Suspect]
     Dosage: NO OF INFUSION RECEIVED-1. NXT INF ON 18MAY11.
  3. IRON [Concomitant]
     Dosage: IRON PILLS
  4. NEXIUM [Concomitant]
  5. FOLIC ACID [Concomitant]
  6. METHOTREXATE [Suspect]
     Dosage: 1 DOSAGE FORM: 10 PILLS PER WEEK.
  7. VITAMIN D [Concomitant]
  8. LOTREL [Concomitant]
     Indication: BLOOD PRESSURE INCREASED

REACTIONS (1)
  - ANAEMIA [None]
